FAERS Safety Report 21922120 (Version 2)
Quarter: 2023Q1

REPORT INFORMATION
  Report Type: Other
  Country: GB (occurrence: GB)
  Receive Date: 20230128
  Receipt Date: 20230210
  Transmission Date: 20230418
  Serious: Yes (Other)
  Sender: FDA-Public Use
  Company Number: GB-CELLTRION INC.-2023GB001693

PATIENT

DRUGS (19)
  1. RITUXIMAB [Suspect]
     Active Substance: RITUXIMAB
     Indication: Diffuse large B-cell lymphoma
     Dosage: AS A PART OF R-CHOP REGIMEN
     Dates: start: 20191018, end: 20200131
  2. RITUXIMAB [Suspect]
     Active Substance: RITUXIMAB
     Indication: Product used for unknown indication
     Dosage: AS A PART OF R-GDP REGIMEN
     Dates: start: 20200810, end: 20200907
  3. RITUXIMAB [Suspect]
     Active Substance: RITUXIMAB
     Dosage: UNK
     Dates: start: 20201012, end: 20201013
  4. RITUXIMAB [Suspect]
     Active Substance: RITUXIMAB
     Dosage: AS A PART OF POLA-BR REGIMEN FOR 4 CYCLES
     Dates: start: 20210927, end: 20211220
  5. BENDAMUSTINE [Suspect]
     Active Substance: BENDAMUSTINE
     Indication: Diffuse large B-cell lymphoma
     Dosage: CYCLIC (DOSAGE FORM: POWDER (EXCEPT DUSTING POWDER), AS A PART OF POLA-BR REGIMEN, 50%
     Route: 042
     Dates: start: 20210927, end: 20211220
  6. BENDAMUSTINE [Suspect]
     Active Substance: BENDAMUSTINE
     Indication: Product used for unknown indication
     Dosage: ONCE DAILY, DOSAGE FORM: POWDER (EXCEPT DUSTING POWDER)
     Route: 042
     Dates: start: 20201012, end: 20201013
  7. CYCLOPHOSPHAMIDE [Suspect]
     Active Substance: CYCLOPHOSPHAMIDE
     Indication: Diffuse large B-cell lymphoma
     Dosage: AS A PART OF R-CHOP REGIMEN
     Dates: start: 20191018, end: 20200131
  8. CARBOPLATIN [Suspect]
     Active Substance: CARBOPLATIN
     Indication: Diffuse large B-cell lymphoma
     Dosage: AS A PART OF R-GEMOX REGIMEN
     Dates: start: 20220915, end: 20221229
  9. CISPLATIN [Suspect]
     Active Substance: CISPLATIN
     Indication: Diffuse large B-cell lymphoma
     Dosage: AS A PART OF R-GEMOX REGIMEN
     Dates: start: 20220915, end: 20221229
  10. CISPLATIN [Suspect]
     Active Substance: CISPLATIN
     Indication: Product used for unknown indication
     Dosage: AS A PART OF R-GDP REGIMEN
     Dates: start: 20200810, end: 20200907
  11. DOXORUBICIN [Suspect]
     Active Substance: DOXORUBICIN
     Indication: Diffuse large B-cell lymphoma
     Dosage: AS A PART OF R-CHOP REGIMEN
     Dates: start: 20191018, end: 20200131
  12. DEXAMETHASONE [Suspect]
     Active Substance: DEXAMETHASONE
     Indication: Diffuse large B-cell lymphoma
     Dosage: AS A PART OF R-GDP REGIMEN
     Dates: start: 20200810, end: 20200907
  13. GEMCITABINE [Suspect]
     Active Substance: GEMCITABINE
     Indication: Diffuse large B-cell lymphoma
     Dosage: AS A PART OF R-GDP REGIMEN
     Dates: start: 20200810, end: 20200907
  14. GEMCITABINE [Suspect]
     Active Substance: GEMCITABINE
     Indication: Product used for unknown indication
     Dosage: AS A PART OF R-GEMOX REGIMEN
     Dates: start: 20220915, end: 20221229
  15. OXALIPLATIN [Suspect]
     Active Substance: OXALIPLATIN
     Indication: Diffuse large B-cell lymphoma
     Dosage: AS A PART OF R-GEMOX REGIMEN
     Dates: start: 20220915, end: 20221229
  16. POLATUZUMAB VEDOTIN [Suspect]
     Active Substance: POLATUZUMAB VEDOTIN
     Indication: Diffuse large B-cell lymphoma
     Dosage: UNK
     Dates: start: 20201012, end: 20201013
  17. POLATUZUMAB VEDOTIN [Suspect]
     Active Substance: POLATUZUMAB VEDOTIN
     Indication: Product used for unknown indication
     Dosage: AS A PART OF POLA-BR REGIMEN FOR 4 CYCLES
     Dates: start: 20210927, end: 20211220
  18. PREDNISONE [Suspect]
     Active Substance: PREDNISONE
     Indication: Diffuse large B-cell lymphoma
     Dosage: AS A PART OF R-CHOP REGIMEN
     Dates: start: 20191018, end: 20200131
  19. VINCRISTINE [Suspect]
     Active Substance: VINCRISTINE
     Indication: Diffuse large B-cell lymphoma
     Dosage: AS A PART OF R-CHOP REGIMEN
     Dates: start: 20191018, end: 20200131

REACTIONS (1)
  - Malignant neoplasm progression [Unknown]
